FAERS Safety Report 4738526-3 (Version None)
Quarter: 2005Q3

REPORT INFORMATION
  Report Type: 
  Country: None (occurrence: None)
  Receive Date: 20050809
  Receipt Date: 20050720
  Transmission Date: 20060218
  Serious: Yes (Hospitalization)
  Sender: FDA-Public Use
  Company Number: PHBS2005BR10682

PATIENT
  Age: 55 Year
  Sex: Female

DRUGS (4)
  1. ATENOLOL [Concomitant]
     Indication: CEREBRAL DISORDER
     Dosage: UNK, QD
     Route: 048
  2. PHOSPHATIDYL CHOLINE [Concomitant]
     Indication: CEREBRAL DISORDER
     Dosage: UNK, QD
     Route: 048
  3. DERMAVITE [Concomitant]
     Indication: ALOPECIA
  4. DIOVAN HCT [Suspect]
     Indication: CARDIAC VALVE DISEASE
     Dosage: UNK, QD
     Route: 048

REACTIONS (4)
  - CEREBRAL CIRCULATORY FAILURE [None]
  - CEREBRAL ISCHAEMIA [None]
  - HYPERHIDROSIS [None]
  - HYPOAESTHESIA [None]
